FAERS Safety Report 14027715 (Version 1)
Quarter: 2017Q3

REPORT INFORMATION
  Report Type: Spontaneous
  Country: US (occurrence: US)
  Receive Date: 20170929
  Receipt Date: 20170929
  Transmission Date: 20171128
  Serious: Yes (Hospitalization, Disabling, Other)
  Sender: FDA-Public Use
  Company Number: US-009507513-1709USA014174

PATIENT
  Age: 51 Year
  Sex: Female
  Weight: 63.99 kg

DRUGS (2)
  1. DEXAMETHASONE. [Suspect]
     Active Substance: DEXAMETHASONE
     Indication: ANTIEMETIC SUPPORTIVE CARE
     Dosage: UNK
  2. CELECOXIB. [Suspect]
     Active Substance: CELECOXIB
     Indication: COLON CANCER
     Dosage: TOTAL DOSE: 1200MG
     Dates: start: 20151118

REACTIONS (1)
  - Hyperglycaemia [Recovered/Resolved with Sequelae]
